FAERS Safety Report 4399725-6 (Version None)
Quarter: 2004Q3

REPORT INFORMATION
  Report Type: 
  Country: None (occurrence: None)
  Receive Date: 20040714
  Receipt Date: 20040618
  Transmission Date: 20050211
  Serious: Yes (Hospitalization)
  Sender: FDA-Public Use
  Company Number: JP_040603569

PATIENT
  Age: 41 Year
  Sex: Female
  Weight: 66 kg

DRUGS (1)
  1. ZYPREXA [Suspect]
     Indication: SCHIZOPHRENIA
     Dosage: 15 MG DAY
     Dates: start: 20040409

REACTIONS (4)
  - BLEPHAROSPASM [None]
  - CEREBRAL VENTRICLE DILATATION [None]
  - MEIGE'S SYNDROME [None]
  - WEIGHT INCREASED [None]
